APPROVED DRUG PRODUCT: DIFLORASONE DIACETATE
Active Ingredient: DIFLORASONE DIACETATE
Strength: 0.05%
Dosage Form/Route: OINTMENT;TOPICAL
Application: A075331 | Product #001 | TE Code: AB
Applicant: SUN PHARMA CANADA INC
Approved: May 14, 1999 | RLD: No | RS: Yes | Type: RX